FAERS Safety Report 8000669-9 (Version None)
Quarter: 2011Q4

REPORT INFORMATION
  Report Type: 
  Country: None (occurrence: None)
  Receive Date: 20111222
  Receipt Date: 20111209
  Transmission Date: 20120403
  Serious: Yes (Life-Threatening, Other)
  Sender: FDA-Public Use
  Company Number: IN-US-EMD SERONO, INC.-7100612

PATIENT
  Age: 31 Year
  Sex: Female

DRUGS (1)
  1. CLOMIPHENE CITRATE [Suspect]
     Indication: OVULATION INDUCTION

REACTIONS (3)
  - RUPTURED ECTOPIC PREGNANCY [None]
  - MATERNAL EXPOSURE BEFORE PREGNANCY [None]
  - TACHYCARDIA [None]
